FAERS Safety Report 7670069-X (Version None)
Quarter: 2011Q3

REPORT INFORMATION
  Report Type: 
  Country: None (occurrence: None)
  Receive Date: 20110808
  Receipt Date: 20110802
  Transmission Date: 20111222
  Serious: Yes (Death, Life-Threatening)
  Sender: FDA-Public Use
  Company Number: DE-ASTRAZENECA-2011SE46218

PATIENT
  Age: 66 Year
  Sex: Male

DRUGS (17)
  1. DIPIPERON [Suspect]
     Route: 048
     Dates: start: 20050927
  2. SEROQUEL [Suspect]
     Route: 048
     Dates: start: 20051014
  3. VALPROATE SODIUM [Suspect]
     Route: 048
     Dates: end: 20051012
  4. FUROSEMIDE [Concomitant]
     Route: 048
  5. CIPROFLOXACIN [Concomitant]
     Route: 048
     Dates: start: 20051017
  6. KALINOR [Concomitant]
     Route: 048
     Dates: start: 20051017
  7. DIPIPERON [Suspect]
     Route: 048
     Dates: end: 20050926
  8. OXAZEPAM [Suspect]
     Route: 048
  9. OXAZEPAM [Suspect]
     Route: 048
     Dates: start: 20051011, end: 20051016
  10. THEOPHYLLINE [Concomitant]
     Route: 048
     Dates: end: 20051010
  11. SEROQUEL [Suspect]
     Dosage: 12.5 - 150 MG/DAY
     Route: 048
     Dates: start: 20050927, end: 20051013
  12. PHENYTOIN [Suspect]
     Route: 048
  13. VALPROATE SODIUM [Suspect]
     Route: 048
     Dates: start: 20051013
  14. OXAZEPAM [Suspect]
     Route: 048
     Dates: start: 20051017
  15. LANITOP [Concomitant]
     Route: 048
  16. THEOPHYLLINE [Concomitant]
     Route: 048
     Dates: start: 20051011
  17. ACETAMINOPHEN [Concomitant]
     Route: 048
     Dates: start: 20051017

REACTIONS (1)
  - PNEUMONIA [None]
